FAERS Safety Report 13427574 (Version 1)
Quarter: 2017Q2

REPORT INFORMATION
  Report Type: Spontaneous
  Country: US (occurrence: US)
  Receive Date: 20170411
  Receipt Date: 20170411
  Transmission Date: 20170830
  Serious: No
  Sender: FDA-Public Use
  Company Number: US-LPDUSPRD-20170290

PATIENT

DRUGS (2)
  1. BUSULFAN INJECTION (0517-0920-01) [Suspect]
     Active Substance: BUSULFAN
     Dosage: DOSE UNKNOWN
     Route: 042
  2. TEVADAPTOR SYRINGE ADAPTER HF [Suspect]
     Active Substance: DEVICE

REACTIONS (6)
  - No adverse event [Unknown]
  - Device breakage [Unknown]
  - Accidental exposure to product [None]
  - Wrong technique in product usage process [None]
  - Product preparation error [Unknown]
  - Device leakage [None]
